FAERS Safety Report 25001947 (Version 2)
Quarter: 2025Q1

REPORT INFORMATION
  Report Type: Spontaneous
  Country: CN (occurrence: CN)
  Receive Date: 20250224
  Receipt Date: 20250228
  Transmission Date: 20250408
  Serious: Yes (Other)
  Sender: ABBVIE
  Company Number: CN-PFIZER INC-PV202500020084

PATIENT
  Age: 35 Year
  Sex: Male
  Weight: 60 kg

DRUGS (9)
  1. AVIBACTAM SODIUM [Suspect]
     Active Substance: AVIBACTAM SODIUM
     Indication: Infection
     Route: 041
     Dates: start: 20250119, end: 20250119
  2. OMEPRAZOLE SODIUM [Concomitant]
     Active Substance: OMEPRAZOLE SODIUM
     Indication: Therapeutic procedure
     Dosage: 40 MG, 2X/DAY
     Route: 041
     Dates: start: 20241222, end: 20250128
  3. VITAMIN C [Concomitant]
     Active Substance: ASCORBIC ACID
     Indication: Vitamin supplementation
     Dosage: 2 G, 1X/DAY
     Route: 041
     Dates: start: 20241222, end: 20250202
  4. AMBROXOL HYDROCHLORIDE [Concomitant]
     Active Substance: AMBROXOL HYDROCHLORIDE
     Indication: Sputum abnormal
     Dosage: 60 MG, 2X/DAY VIA PUMP INJECTION
     Dates: start: 20241222, end: 20250202
  5. AMINO ACIDS, SOURCE UNSPECIFIED [Concomitant]
     Active Substance: AMINO ACIDS, SOURCE UNSPECIFIED
     Indication: Nutritional supplementation
     Dosage: 250 ML, 1X/DAY
     Route: 041
     Dates: start: 20241222, end: 20250128
  6. VITAMINS [Concomitant]
     Active Substance: VITAMINS
     Indication: Vitamin supplementation
     Dosage: 1 DF, 1X/DAY
     Route: 041
     Dates: start: 20241222, end: 20250128
  7. DEXTROSE [Concomitant]
     Active Substance: DEXTROSE MONOHYDRATE
     Indication: Malnutrition
     Dosage: 500 ML, 1X/DAY
     Route: 041
     Dates: start: 20241222, end: 20250202
  8. INSULIN NOS [Concomitant]
     Active Substance: INSULIN NOS
     Indication: Malnutrition
     Dosage: 12 IU, 1X/DAY
     Route: 041
     Dates: start: 20241222, end: 20250202
  9. POTASSIUM CHLORIDE [Concomitant]
     Active Substance: POTASSIUM CHLORIDE
     Indication: Mineral supplementation
     Dosage: 15 ML, 1X/DAY
     Route: 041
     Dates: start: 20241222, end: 20250202

REACTIONS (6)
  - Arrhythmia [Recovered/Resolved]
  - Heart rate increased [Recovered/Resolved]
  - Erythema [Recovered/Resolved]
  - Drug hypersensitivity [Recovered/Resolved]
  - Flushing [Recovered/Resolved]
  - Tachypnoea [Recovered/Resolved]

NARRATIVE: CASE EVENT DATE: 20250119
